FAERS Safety Report 4860350-1 (Version None)
Quarter: 2005Q4

REPORT INFORMATION
  Report Type: 
  Country: None (occurrence: None)
  Receive Date: 20051219
  Receipt Date: 20051209
  Transmission Date: 20060501
  Serious: Yes (Other)
  Sender: FDA-Public Use
  Company Number: CA-BRISTOL-MYERS SQUIBB COMPANY-13218649

PATIENT
  Age: 72 Year
  Sex: Male

DRUGS (8)
  1. TEQUIN [Suspect]
     Route: 048
  2. ADALAT [Concomitant]
  3. ASPIRIN [Concomitant]
  4. GLYBURIDE [Concomitant]
  5. LIPITOR [Concomitant]
  6. METFORMIN HCL [Concomitant]
  7. PROCHLORPERAZINE [Concomitant]
  8. ZANTAC [Concomitant]

REACTIONS (1)
  - HYPOGLYCAEMIA [None]
